FAERS Safety Report 7076787-9 (Version None)
Quarter: 2010Q4

REPORT INFORMATION
  Report Type: 
  Country: None (occurrence: None)
  Receive Date: 20101029
  Receipt Date: 20101029
  Transmission Date: 20110411
  Serious: Yes (Other)
  Sender: FDA-Public Use
  Company Number: None

PATIENT
  Age: 65 Year
  Sex: Female
  Weight: 70.7611 kg

DRUGS (1)
  1. AMOXICILLIN [Suspect]
     Indication: TOOTH ABSCESS
     Dosage: 1 CAPSULE (500MG) EVERY 8 HOURS BY MOUTH
     Route: 048
     Dates: start: 20100924

REACTIONS (4)
  - DYSPEPSIA [None]
  - ERUCTATION [None]
  - PRODUCT CONTAMINATION [None]
  - PRODUCT TASTE ABNORMAL [None]
